FAERS Safety Report 7308392-0 (Version None)
Quarter: 2011Q1

REPORT INFORMATION
  Report Type: 
  Country: None (occurrence: None)
  Receive Date: 20110223
  Receipt Date: 20110217
  Transmission Date: 20110831
  Serious: Yes (Other)
  Sender: FDA-Public Use
  Company Number: US-ABBOTT-11P-163-0701028-00

PATIENT
  Sex: Female
  Weight: 78.088 kg

DRUGS (9)
  1. HUMIRA [Suspect]
     Dates: end: 20100901
  2. OXYCODONE [Concomitant]
     Indication: ARTHRALGIA
  3. METFORMIN [Concomitant]
     Indication: DIABETES MELLITUS
  4. HUMIRA [Suspect]
     Indication: RHEUMATOID ARTHRITIS
     Route: 058
     Dates: start: 20010213, end: 20070101
  5. HUMIRA [Suspect]
     Route: 058
     Dates: start: 20110217
  6. HUMIRA [Suspect]
     Route: 058
     Dates: start: 20070101, end: 20100701
  7. METOPROLOL [Concomitant]
     Indication: HYPERTENSION
  8. AMBIEN [Concomitant]
     Indication: INSOMNIA
     Dosage: EVERY NIGHT
  9. ARAVA [Concomitant]
     Indication: RHEUMATOID ARTHRITIS
     Dates: start: 20070101

REACTIONS (7)
  - POST PROCEDURAL INFECTION [None]
  - ARTHRITIS [None]
  - STRESS [None]
  - GAIT DISTURBANCE [None]
  - DRUG INEFFECTIVE [None]
  - ARTHRALGIA [None]
  - RHEUMATOID ARTHRITIS [None]
